FAERS Safety Report 4683817-8 (Version None)
Quarter: 2005Q2

REPORT INFORMATION
  Report Type: 
  Country: None (occurrence: None)
  Receive Date: 20050602
  Receipt Date: 20050405
  Transmission Date: 20051028
  Serious: No
  Sender: FDA-Public Use
  Company Number: USA050495048

PATIENT
  Age: 66 Year
  Sex: Female

DRUGS (5)
  1. CYMBALTA [Suspect]
     Dosage: 60 MG
     Dates: start: 20050208
  2. ELAVIL [Concomitant]
  3. DEPAKOTE [Concomitant]
  4. ARICEPT [Concomitant]
  5. NEURONTIN (GABAPENTIN PFIZER) [Concomitant]

REACTIONS (5)
  - ATHETOSIS [None]
  - BRUXISM [None]
  - LOWER LIMB DEFORMITY [None]
  - MUSCLE SPASMS [None]
  - RESTLESSNESS [None]
